FAERS Safety Report 23988991 (Version 1)
Quarter: 2024Q2

REPORT INFORMATION
  Report Type: Spontaneous
  Country: BG (occurrence: BG)
  Receive Date: 20240619
  Receipt Date: 20240619
  Transmission Date: 20240716
  Serious: Yes (Life-Threatening, Hospitalization)
  Sender: FDA-Public Use
  Company Number: BG-STERISCIENCE B.V.-2024-ST-000829

PATIENT
  Age: 32 Year
  Sex: Female

DRUGS (2)
  1. CARBOPROST TROMETHAMINE [Suspect]
     Active Substance: CARBOPROST TROMETHAMINE
     Indication: Uterine haemorrhage
     Dosage: 1 MILLIGRAM INJECTION
     Route: 030
  2. OXYTOCIN [Suspect]
     Active Substance: OXYTOCIN
     Indication: Uterine haemorrhage
     Dosage: 40 INTERNATIONAL UNIT
     Route: 065

REACTIONS (1)
  - Drug ineffective [Unknown]
